FAERS Safety Report 15406041 (Version 2)
Quarter: 2019Q1

REPORT INFORMATION
  Report Type: Spontaneous
  Country: US (occurrence: US)
  Receive Date: 20180920
  Receipt Date: 20190306
  Transmission Date: 20190417
  Serious: No
  Sender: FDA-Public Use
  Company Number: US-PFIZER INC-2018379454

PATIENT
  Age: 6 Year
  Sex: Male

DRUGS (3)
  1. CYPROHEPTADINE. [Concomitant]
     Active Substance: CYPROHEPTADINE
     Indication: HYPERSENSITIVITY
     Dosage: UNK, AS NEEDED (LIFE TIME)
     Dates: start: 20141208
  2. EUCRISA [Suspect]
     Active Substance: CRISABOROLE
     Indication: ECZEMA
  3. EUCRISA [Suspect]
     Active Substance: CRISABOROLE
     Indication: DERMATITIS ATOPIC
     Dosage: UNK, TWICE DAILY
     Route: 061
     Dates: start: 20170815, end: 20180904

REACTIONS (1)
  - Drug effect incomplete [Recovered/Resolved]
